FAERS Safety Report 6205999-9 (Version None)
Quarter: 2009Q2

REPORT INFORMATION
  Report Type: 
  Country: None (occurrence: None)
  Receive Date: 20090527
  Receipt Date: 20090527
  Transmission Date: 20091009
  Serious: Yes (Hospitalization)
  Sender: FDA-Public Use
  Company Number: None

PATIENT
  Sex: Female
  Weight: 44 kg

DRUGS (5)
  1. PEG-L-ASPARAGINASE (PEGASPARGASE, ONCOSPAR) [Suspect]
     Dosage: 3400 UNIT
     Dates: end: 20090522
  2. PREDNISONE [Suspect]
     Dosage: 80 MG
     Dates: end: 20090519
  3. VINCRISTINE SULFATE [Suspect]
     Dosage: 2 MG
     Dates: end: 20090519
  4. CYTARABINE [Suspect]
     Dosage: 70 MG
     Dates: end: 20090518
  5. DAUNORUBICIN HCL [Suspect]
     Dosage: 34 MG
     Dates: end: 20090519

REACTIONS (1)
  - ANAPHYLACTIC REACTION [None]
